FAERS Safety Report 6407448-4 (Version None)
Quarter: 2009Q4

REPORT INFORMATION
  Report Type: 
  Country: None (occurrence: None)
  Receive Date: 20091020
  Receipt Date: 20091015
  Transmission Date: 20100525
  Serious: Yes (Hospitalization, Other)
  Sender: FDA-Public Use
  Company Number: JP-BRISTOL-MYERS SQUIBB COMPANY-14784391

PATIENT
  Age: 82 Year
  Sex: Female
  Weight: 42 kg

DRUGS (3)
  1. TAXOL [Suspect]
     Indication: MALIGNANT ASCITES
     Dosage: ON DAYS 30JUL2009 AND 18SEP2009
     Route: 041
     Dates: start: 20090730, end: 20090918
  2. PARAPLATIN [Suspect]
     Indication: MALIGNANT ASCITES
     Dosage: RECEIVED CARBOPLATIN ON DAYS 30JUL2009, 27AUG2009, AND 18SEP2009
     Route: 041
     Dates: start: 20090730
  3. TAXOTERE [Suspect]
     Indication: MALIGNANT ASCITES
     Route: 041
     Dates: start: 20090827, end: 20090827

REACTIONS (1)
  - HALLUCINATION [None]
